FAERS Safety Report 8334001-8 (Version None)
Quarter: 2012Q1

REPORT INFORMATION
  Report Type: 
  Country: None (occurrence: None)
  Receive Date: 20120328
  Receipt Date: 20100329
  Transmission Date: 20120608
  Serious: Yes (Other)
  Sender: FDA-Public Use
  Company Number: PHEH2010US02023

PATIENT
  Age: 60 Year
  Sex: Male
  Weight: 91.6 kg

DRUGS (7)
  1. WELLBUTRIN XL [Concomitant]
  2. CLONAZEPAM [Concomitant]
  3. LIPITOR [Concomitant]
  4. LAMICTAL [Concomitant]
  5. VALTURNA [Suspect]
     Indication: HYPERTENSION
     Dosage: 300 MG/ONE QD, ORAL
     Route: 048
     Dates: start: 20100126
  6. PROTONIX [Concomitant]
  7. ANDROGEL [Concomitant]

REACTIONS (3)
  - HEADACHE [None]
  - DIZZINESS [None]
  - HYPERTENSION [None]
